FAERS Safety Report 9311636 (Version 2)
Quarter: 2013Q2

REPORT INFORMATION
  Report Type: Spontaneous
  Country: JP (occurrence: JP)
  Receive Date: 20130528
  Receipt Date: 20130617
  Transmission Date: 20140414
  Serious: Yes (Death)
  Sender: FDA-Public Use
  Company Number: JP-OTSUKA-JP-2013-11877

PATIENT
  Age: 63 Year
  Sex: Male

DRUGS (2)
  1. BUSULFEX [Suspect]
     Route: 041
  2. FLUDARABINE [Concomitant]
     Dosage: UNK
     Route: 042

REACTIONS (1)
  - Infection [Fatal]
